FAERS Safety Report 8757473 (Version 1)
Quarter: 2012Q4

REPORT INFORMATION
  Report Type: 
  Country: IT (occurrence: IT)
  Receive Date: 20120828
  Receipt Date: 20120828
  Transmission Date: 20130627
  Serious: Yes (Other)
  Sender: FDA-Public Use
  Company Number: IT-MYLANLABS-2012S1017371

PATIENT
  Age: 37 Year
  Sex: Female

DRUGS (7)
  1. PACLITAXEL [Suspect]
     Indication: PRODUCT USED FOR UNKNOWN INDICATION
     Route: 042
     Dates: start: 20120807, end: 20120807
  2. LANSOX [Concomitant]
     Indication: PRODUCT USED FOR UNKNOWN INDICATION
  3. SEREUPIN [Concomitant]
     Indication: PRODUCT USED FOR UNKNOWN INDICATION
  4. CLEXANE [Concomitant]
     Indication: PRODUCT USED FOR UNKNOWN INDICATION
  5. ARCOXIA [Concomitant]
     Indication: PRODUCT USED FOR UNKNOWN INDICATION
  6. CONTRAMAL [Concomitant]
     Indication: PRODUCT USED FOR UNKNOWN INDICATION
  7. KESTINE [Concomitant]
     Indication: PRODUCT USED FOR UNKNOWN INDICATION

REACTIONS (6)
  - Abdominal pain [Recovered/Resolved]
  - Confusional state [Recovered/Resolved]
  - Erythema [Recovered/Resolved]
  - Hypotension [Recovered/Resolved]
  - Retching [Recovered/Resolved]
  - Chest discomfort [Recovered/Resolved]
